FAERS Safety Report 13698413 (Version 3)
Quarter: 2017Q3

REPORT INFORMATION
  Report Type: Spontaneous
  Country: NO (occurrence: NO)
  Receive Date: 20170628
  Receipt Date: 20170710
  Transmission Date: 20171127
  Serious: Yes (Death, Hospitalization, Other)
  Sender: FDA-Public Use
  Company Number: NO-BRISTOL-MYERS SQUIBB COMPANY-BMS-2017-057156

PATIENT
  Age: 75 Year
  Sex: Male
  Weight: 116 kg

DRUGS (2)
  1. ALBYL-E [Suspect]
     Active Substance: ASPIRIN\MAGNESIUM OXIDE
     Indication: ATRIAL FIBRILLATION
     Dosage: 75 MG, QD
     Route: 048
     Dates: end: 20170304
  2. ELIQUIS [Suspect]
     Active Substance: APIXABAN
     Indication: CEREBROVASCULAR ACCIDENT PROPHYLAXIS
     Dosage: 5 MG, BID
     Route: 048
     Dates: start: 2014, end: 20170304

REACTIONS (3)
  - Traumatic intracranial haemorrhage [Fatal]
  - Skull fracture [Unknown]
  - Road traffic accident [Unknown]

NARRATIVE: CASE EVENT DATE: 20170304
